FAERS Safety Report 10728097 (Version 4)
Quarter: 2015Q3

REPORT INFORMATION
  Report Type: Spontaneous
  Country: US (occurrence: US)
  Receive Date: 20150121
  Receipt Date: 20150930
  Transmission Date: 20151125
  Serious: Yes (Hospitalization)
  Sender: FDA-Public Use
  Company Number: US-ACTELION-A-NJ2015-111206

PATIENT
  Age: 55 Year
  Sex: Female

DRUGS (11)
  1. VELETRI [Suspect]
     Active Substance: EPOPROSTENOL
     Indication: PULMONARY ARTERIAL HYPERTENSION
     Dosage: 17.9 NG/KG, PER MIN
     Route: 042
     Dates: start: 20121017
  2. IMURAN [Concomitant]
     Active Substance: AZATHIOPRINE
  3. LASIX [Concomitant]
     Active Substance: FUROSEMIDE
  4. DIGOXIN. [Concomitant]
     Active Substance: DIGOXIN
  5. LETAIRIS [Concomitant]
     Active Substance: AMBRISENTAN
  6. WARFARIN [Concomitant]
     Active Substance: WARFARIN
  7. KCL [Concomitant]
     Active Substance: POTASSIUM CHLORIDE
  8. VELETRI [Suspect]
     Active Substance: EPOPROSTENOL
     Dosage: 18.0 NG/KG, PER MIN
     Route: 042
     Dates: start: 20121212
  9. ADCIRCA [Concomitant]
     Active Substance: TADALAFIL
  10. FLEXERIL [Concomitant]
     Active Substance: CYCLOBENZAPRINE HYDROCHLORIDE
  11. ALDACTONE [Concomitant]
     Active Substance: SPIRONOLACTONE

REACTIONS (8)
  - Device connection issue [Unknown]
  - Catheter placement [Unknown]
  - Drug administration error [Unknown]
  - Device leakage [Unknown]
  - Back pain [Unknown]
  - Upper respiratory tract infection [Unknown]
  - Pneumonia [Unknown]
  - Asthenia [Unknown]

NARRATIVE: CASE EVENT DATE: 20150108
